FAERS Safety Report 11040790 (Version 3)
Quarter: 2015Q3

REPORT INFORMATION
  Report Type: Spontaneous
  Country: US (occurrence: US)
  Receive Date: 20150416
  Receipt Date: 20150717
  Transmission Date: 20151125
  Serious: No
  Sender: FDA-Public Use
  Company Number: US-GILEAD-2015-0148253

PATIENT
  Age: 64 Year
  Sex: Female

DRUGS (1)
  1. SOVALDI [Suspect]
     Active Substance: SOFOSBUVIR
     Indication: HEPATITIS C
     Dosage: 400 MG, QD
     Route: 048
     Dates: start: 20150309

REACTIONS (5)
  - Anxiety [Unknown]
  - Paraesthesia [Unknown]
  - Herpes zoster [Unknown]
  - Migraine [Unknown]
  - Influenza like illness [Unknown]
